FAERS Safety Report 5947427-4 (Version None)
Quarter: 2008Q4

REPORT INFORMATION
  Report Type: 
  Country: None (occurrence: None)
  Receive Date: 20081110
  Receipt Date: 20081029
  Transmission Date: 20090506
  Serious: Yes (Death)
  Sender: FDA-Public Use
  Company Number: JP-PFIZER INC-2008092348

PATIENT
  Sex: Male
  Weight: 46 kg

DRUGS (9)
  1. SUTENT [Suspect]
     Indication: RENAL CELL CARCINOMA
     Route: 048
     Dates: start: 20081006, end: 20081017
  2. NOVAMIN [Concomitant]
     Route: 048
  3. OXYCONTIN [Concomitant]
     Route: 048
  4. MICARDIS [Concomitant]
     Route: 048
  5. TENORMIN [Concomitant]
     Route: 048
  6. CALONAL [Concomitant]
     Route: 048
  7. PANTOSIN [Concomitant]
     Route: 048
  8. MAGNESIUM OXIDE [Concomitant]
     Route: 048
  9. FENTANYL-25 [Concomitant]
     Route: 062

REACTIONS (2)
  - DEATH [None]
  - PLATELET COUNT DECREASED [None]
